FAERS Safety Report 6125104-7 (Version None)
Quarter: 2009Q1

REPORT INFORMATION
  Report Type: 
  Country: None (occurrence: None)
  Receive Date: 20090318
  Receipt Date: 20090309
  Transmission Date: 20090719
  Serious: Yes (Other)
  Sender: FDA-Public Use
  Company Number: 213946

PATIENT
  Age: 20 Month
  Sex: Female
  Weight: 10.7 kg

DRUGS (4)
  1. PRECEDEX [Suspect]
     Indication: SEDATIVE THERAPY
     Dosage: 1 MCG/KG/MIN, INTRAVENOUS DRIP
     Route: 041
  2. MIDAZOLAM HCL [Concomitant]
  3. PROPOFOL [Concomitant]
  4. FENTANYL-25 [Concomitant]

REACTIONS (5)
  - BRADYCARDIA [None]
  - HYPERTENSION [None]
  - HYPOGLYCAEMIA [None]
  - OFF LABEL USE [None]
  - OVERDOSE [None]
